FAERS Safety Report 6193399-X (Version None)
Quarter: 2009Q2

REPORT INFORMATION
  Report Type: 
  Country: None (occurrence: None)
  Receive Date: 20090518
  Receipt Date: 20090507
  Transmission Date: 20091009
  Serious: No
  Sender: FDA-Public Use
  Company Number: US-ELI_LILLY_AND_COMPANY-US200905001459

PATIENT
  Sex: Male

DRUGS (4)
  1. CIALIS [Suspect]
     Dosage: 2.5 MG, UNKNOWN
     Route: 065
     Dates: start: 20090506
  2. CELEXA [Concomitant]
  3. ZYRTEC [Concomitant]
  4. NASONEX [Concomitant]

REACTIONS (6)
  - BALANCE DISORDER [None]
  - EAR DISORDER [None]
  - HEADACHE [None]
  - HYPOACUSIS [None]
  - TINNITUS [None]
  - VISUAL IMPAIRMENT [None]
